FAERS Safety Report 6782820-1 (Version None)
Quarter: 2010Q2

REPORT INFORMATION
  Report Type: 
  Country: None (occurrence: None)
  Receive Date: 20100616
  Receipt Date: 20100607
  Transmission Date: 20101027
  Serious: Yes (Hospitalization, Other)
  Sender: FDA-Public Use
  Company Number: 8050217

PATIENT
  Sex: Female

DRUGS (7)
  1. CERTOLIZUMAB PEGOL (CERTOLIZUMAB PEGOL) [Suspect]
     Dosage: (200 MG 1X/2 WEEKS SUBCUTANEOUS)
     Route: 058
     Dates: start: 20090518
  2. METHOTREXATE [Concomitant]
  3. DICLOFENAC [Concomitant]
  4. PREDNISOLONE [Concomitant]
  5. FOLCUR [Concomitant]
  6. METOPROLOL TARTRATE [Concomitant]
  7. AMLODIPINE BESYLATE AND VALSARTAN [Concomitant]

REACTIONS (2)
  - PAIN [None]
  - URINARY TRACT INFECTION [None]
